FAERS Safety Report 5112831-3 (Version None)
Quarter: 2006Q3

REPORT INFORMATION
  Report Type: 
  Country: None (occurrence: None)
  Receive Date: 20060731
  Receipt Date: 20060628
  Transmission Date: 20061208
  Serious: No
  Sender: FDA-Public Use
  Company Number: 2006PV016637

PATIENT
  Age: 62 Year
  Sex: Female
  Weight: 89.3586 kg

DRUGS (6)
  1. BYETTA [Suspect]
     Indication: DIABETES MELLITUS NON-INSULIN-DEPENDENT
     Dosage: SEE IMAGE
     Route: 058
     Dates: start: 20051001, end: 20060101
  2. BYETTA [Suspect]
     Indication: DIABETES MELLITUS NON-INSULIN-DEPENDENT
     Dosage: SEE IMAGE
     Route: 058
     Dates: start: 20060101
  3. GLYBURIDE [Concomitant]
  4. ZOLOFT [Concomitant]
  5. BENICAR [Concomitant]
  6. BUMETANIDE [Concomitant]

REACTIONS (1)
  - WEIGHT DECREASED [None]
